FAERS Safety Report 24199124 (Version 1)
Quarter: 2024Q3

REPORT INFORMATION
  Report Type: Report from Study
  Country: NO (occurrence: NO)
  Receive Date: 20240812
  Receipt Date: 20240812
  Transmission Date: 20241016
  Serious: Yes (Other)
  Sender: ROCHE
  Company Number: NO-ROCHE-10000040717

PATIENT

DRUGS (1)
  1. RITUXIMAB [Suspect]
     Active Substance: RITUXIMAB
     Indication: Chronic fatigue syndrome
     Dosage: 500 MG/M2, MAX 1000 MG TWO WEEKS APART
     Route: 042

REACTIONS (5)
  - Irritable bowel syndrome [Unknown]
  - Postural orthostatic tachycardia syndrome [Unknown]
  - Pain [Unknown]
  - Muscle spasms [Unknown]
  - Breast cancer [Unknown]
